FAERS Safety Report 5729890-7 (Version None)
Quarter: 2008Q2

REPORT INFORMATION
  Report Type: 
  Country: None (occurrence: None)
  Receive Date: 20080502
  Receipt Date: 20080425
  Transmission Date: 20081010
  Serious: Yes (Hospitalization)
  Sender: FDA-Public Use
  Company Number: US023052

PATIENT
  Age: 61 Year
  Sex: Female
  Weight: 70.3075 kg

DRUGS (4)
  1. ACTIQ [Suspect]
     Indication: PAIN
     Dosage: 1600 UG PRN BUCCAL
     Route: 002
     Dates: start: 19880101
  2. PERCODAN-DEMI [Concomitant]
  3. DURAGESIC-100 [Concomitant]
  4. NEURONTIN [Concomitant]

REACTIONS (12)
  - CYANOSIS [None]
  - DRUG EFFECT DECREASED [None]
  - DYSPNOEA [None]
  - HYPERSENSITIVITY [None]
  - MASS [None]
  - MENTAL STATUS CHANGES [None]
  - PHARMACEUTICAL PRODUCT COMPLAINT [None]
  - RASH ERYTHEMATOUS [None]
  - RASH PRURITIC [None]
  - THERAPEUTIC RESPONSE UNEXPECTED WITH DRUG SUBSTITUTION [None]
  - THROAT TIGHTNESS [None]
  - URTICARIA [None]
